FAERS Safety Report 11929633 (Version 1)
Quarter: 2016Q1

REPORT INFORMATION
  Report Type: Spontaneous
  Country: US (occurrence: None)
  Receive Date: 20160119
  Receipt Date: 20160119
  Transmission Date: 20160526
  Serious: Yes (Life-Threatening, Hospitalization, Disabling)
  Sender: FDA-Public Use
  Company Number: None

PATIENT
  Age: 61 Year
  Sex: Female
  Weight: 92.53 kg

DRUGS (7)
  1. LEVOTHYROXIN [Concomitant]
     Active Substance: LEVOTHYROXINE
  2. POTASSIUM CHLORIDE. [Concomitant]
     Active Substance: POTASSIUM CHLORIDE
  3. MONTELUKAST [Concomitant]
     Active Substance: MONTELUKAST SODIUM
  4. FUROSEMIDE. [Concomitant]
     Active Substance: FUROSEMIDE
  5. TIKOSYN [Suspect]
     Active Substance: DOFETILIDE
     Indication: CARDIAC ABLATION
     Route: 048
     Dates: start: 20151103, end: 20151125
  6. ELIQUIS [Concomitant]
     Active Substance: APIXABAN
  7. LOSARTAN. [Concomitant]
     Active Substance: LOSARTAN

REACTIONS (6)
  - Respiratory arrest [None]
  - Nausea [None]
  - Torsade de pointes [None]
  - Cardiac arrest [None]
  - Activities of daily living impaired [None]
  - Amnesia [None]

NARRATIVE: CASE EVENT DATE: 20151125
